FAERS Safety Report 5469229-8 (Version None)
Quarter: 2007Q3

REPORT INFORMATION
  Report Type: 
  Country: None (occurrence: None)
  Receive Date: 20070924
  Receipt Date: 20070911
  Transmission Date: 20080115
  Serious: Yes (Death)
  Sender: FDA-Public Use
  Company Number: CERZ-11886

PATIENT
  Age: 2 Year
  Sex: Female
  Weight: 6.9 kg

DRUGS (3)
  1. CEREZYME [Suspect]
     Indication: GAUCHER'S DISEASE
     Dosage: 400 UNITS Q2WKS IV
     Route: 042
     Dates: start: 20070118
  2. BENEPOM [Concomitant]
  3. ZAVESCA [Concomitant]

REACTIONS (3)
  - LARYNGOSPASM [None]
  - SUDDEN DEATH [None]
  - UPPER RESPIRATORY TRACT INFECTION [None]
